FAERS Safety Report 5594276-5 (Version None)
Quarter: 2008Q1

REPORT INFORMATION
  Report Type: 
  Country: None (occurrence: None)
  Receive Date: 20080117
  Receipt Date: 20080116
  Transmission Date: 20080703
  Serious: Yes (Congenital Anomaly)
  Sender: FDA-Public Use
  Company Number: US-BRISTOL-MYERS SQUIBB COMPANY-13394416

PATIENT
  Sex: Female
  Weight: 3 kg

DRUGS (3)
  1. VIDEX [Suspect]
     Route: 048
     Dates: start: 20051101
  2. VIRACEPT [Suspect]
     Route: 048
     Dates: start: 20051101
  3. VIREAD [Suspect]
     Route: 048
     Dates: start: 20051101

REACTIONS (2)
  - CONGENITAL TERATOMA [None]
  - PREGNANCY [None]
